FAERS Safety Report 5463349-X (Version None)
Quarter: 2007Q3

REPORT INFORMATION
  Report Type: 
  Country: None (occurrence: None)
  Receive Date: 20070920
  Receipt Date: 20070918
  Transmission Date: 20080115
  Serious: Yes (Other)
  Sender: FDA-Public Use
  Company Number: FR-ELI_LILLY_AND_COMPANY-FR200611003334

PATIENT
  Age: 71 Year
  Sex: Female
  Weight: 60 kg

DRUGS (9)
  1. FORTEO [Suspect]
     Indication: OSTEOPOROSIS
     Dosage: 20 UG, DAILY (1/D)
     Route: 058
     Dates: start: 20060424, end: 20061019
  2. LEVOTHYROX [Concomitant]
     Indication: HYPOTHYROIDISM
     Dosage: 25 UG, DAILY (1/D)
     Route: 048
     Dates: start: 19990101
  3. COTAREG [Concomitant]
     Indication: HYPERTENSION
     Dosage: 1 D/F, DAILY (1/D)
     Route: 048
     Dates: start: 20020101
  4. AMLOR [Concomitant]
     Indication: HYPERTENSION
     Dosage: 5 MG, DAILY (1/D)
     Route: 048
     Dates: start: 20030101
  5. EFFEXOR [Concomitant]
     Indication: SLEEP DISORDER
     Dosage: 37.5 MG, DAILY (1/D)
     Route: 048
     Dates: start: 20040101, end: 20061019
  6. DEPAMIDE [Concomitant]
     Indication: SLEEP DISORDER
     Dosage: 300 MG, DAILY (1/D)
     Route: 048
     Dates: start: 20050101, end: 20061019
  7. ZOLPIDEM TARTRATE [Concomitant]
     Indication: SLEEP DISORDER
     Dosage: 0.5 D/F, DAILY (1/D)
     Route: 048
     Dates: start: 20000101
  8. OROCAL D(3) [Concomitant]
     Indication: OSTEOPOROSIS
     Dosage: 2 D/F, DAILY (1/D)
     Route: 048
     Dates: start: 20060401
  9. GAVISCON /GFR/ [Concomitant]
     Indication: ABDOMINAL PAIN UPPER
     Dosage: UNK, AS NEEDED
     Route: 048

REACTIONS (4)
  - ABDOMINAL PAIN UPPER [None]
  - DYSPEPSIA [None]
  - FLATULENCE [None]
  - MIXED HEPATOCELLULAR-CHOLESTATIC INJURY [None]
